FAERS Safety Report 23838151 (Version 1)
Quarter: 2024Q2

REPORT INFORMATION
  Report Type: Spontaneous
  Country: BR (occurrence: BR)
  Receive Date: 20240509
  Receipt Date: 20240509
  Transmission Date: 20240715
  Serious: Yes (Hospitalization)
  Sender: FDA-Public Use
  Company Number: BR-AMERICAN REGENT INC-2024001714

PATIENT
  Sex: Female

DRUGS (2)
  1. VENOFER [Suspect]
     Active Substance: IRON SUCROSE
     Indication: Iron deficiency
     Dosage: ONE DOSAGE FORM (UNIT) TWICE A WEEK FOR 2 WEEKS (1 DOSAGE FORMS, 2 IN 1 WK)
     Dates: start: 2024, end: 2024
  2. VENOFER [Suspect]
     Active Substance: IRON SUCROSE
     Dosage: ONE DOSAGE FORM 2 DOSES, ONCE A WEEK FOR 3 WEEK (2 DOSAGE FORMS, WEEKLY)
     Dates: start: 20240418

REACTIONS (5)
  - Urticaria [Recovering/Resolving]
  - Oedema peripheral [Recovered/Resolved]
  - Abdominal discomfort [Unknown]
  - Arthralgia [Not Recovered/Not Resolved]
  - Product use complaint [Unknown]

NARRATIVE: CASE EVENT DATE: 20240101
